FAERS Safety Report 8192996-X (Version None)
Quarter: 2012Q1

REPORT INFORMATION
  Report Type: 
  Country: None (occurrence: None)
  Receive Date: 20120221
  Receipt Date: 20111007
  Transmission Date: 20120608
  Serious: No
  Sender: FDA-Public Use
  Company Number: 044622

PATIENT

DRUGS (3)
  1. TRILEPTAL [Concomitant]
  2. LACOSAMIDE [Suspect]
  3. KEPPRA [Concomitant]

REACTIONS (1)
  - AGGRESSION [None]
